FAERS Safety Report 6304417-X (Version None)
Quarter: 2009Q3

REPORT INFORMATION
  Report Type: 
  Country: None (occurrence: None)
  Receive Date: 20090811
  Receipt Date: 20090804
  Transmission Date: 20100115
  Serious: Yes (Other)
  Sender: FDA-Public Use
  Company Number: PHHY2009BR32536

PATIENT
  Age: 91 Year
  Sex: Female

DRUGS (4)
  1. EXELON [Suspect]
     Indication: ANXIETY
     Dosage: 1 PATCH DAILY
     Route: 062
     Dates: start: 20090803
  2. CLOPIDOGREL [Concomitant]
     Indication: CEREBROVASCULAR ACCIDENT
     Dosage: 75 MG DAILY
     Route: 048
     Dates: start: 20070101
  3. ATENOLOL [Concomitant]
     Dosage: 25 MG, BID
     Route: 048
     Dates: start: 20070101
  4. CAPTOPRIL [Concomitant]
     Indication: HYPERTENSION
     Dosage: 25 MG, BID
     Route: 048
     Dates: start: 20070101

REACTIONS (3)
  - AKINESIA [None]
  - CONFUSIONAL STATE [None]
  - MOTOR DYSFUNCTION [None]
